FAERS Safety Report 15494170 (Version 1)
Quarter: 2018Q4

REPORT INFORMATION
  Report Type: Spontaneous
  Country: US (occurrence: US)
  Receive Date: 20181012
  Receipt Date: 20181012
  Transmission Date: 20190205
  Serious: Yes (Other)
  Sender: FDA-Public Use
  Company Number: None

PATIENT
  Age: 22 Year
  Sex: Female
  Weight: 141.75 kg

DRUGS (1)
  1. BENLYSTA [Suspect]
     Active Substance: BELIMUMAB
     Indication: SYSTEMIC LUPUS ERYTHEMATOSUS
     Dosage: ?          OTHER FREQUENCY:2 WEEKS;?
     Route: 042
     Dates: start: 20180926, end: 20181010

REACTIONS (5)
  - Abdominal discomfort [None]
  - Nail discolouration [None]
  - Tremor [None]
  - Spinal pain [None]
  - Pallor [None]

NARRATIVE: CASE EVENT DATE: 20181010
